FAERS Safety Report 10626751 (Version 3)
Quarter: 2014Q4

REPORT INFORMATION
  Report Type: Spontaneous
  Country: AU (occurrence: AU)
  Receive Date: 20141204
  Receipt Date: 20141219
  Transmission Date: 20150529
  Serious: Yes (Death)
  Sender: FDA-Public Use
  Company Number: AU-BRACCO-000962

PATIENT
  Age: 89 Year
  Sex: Male

DRUGS (1)
  1. ISOVUE 300 [Suspect]
     Active Substance: IOPAMIDOL
     Indication: COMPUTERISED TOMOGRAM
     Route: 042
     Dates: start: 20140922, end: 20140922

REACTIONS (4)
  - Cardiac arrest [Fatal]
  - Dyspnoea [Fatal]
  - Muscle rigidity [Unknown]
  - Contrast media reaction [None]

NARRATIVE: CASE EVENT DATE: 20140922
